FAERS Safety Report 21666937 (Version 1)
Quarter: 2022Q4

REPORT INFORMATION
  Report Type: Spontaneous
  Country: GB (occurrence: GB)
  Receive Date: 20221201
  Receipt Date: 20221201
  Transmission Date: 20230113
  Serious: Yes (Other)
  Sender: FDA-Public Use
  Company Number: GB-ROCHE-3229096

PATIENT
  Age: 67 Year
  Sex: Female

DRUGS (5)
  1. RITUXIMAB [Suspect]
     Active Substance: RITUXIMAB
     Indication: Mantle cell lymphoma
     Dosage: 4 CYCLES; ;
     Route: 065
     Dates: start: 202203
  2. VENETOCLAX [Suspect]
     Active Substance: VENETOCLAX
     Indication: Mantle cell lymphoma
     Route: 050
     Dates: start: 202207
  3. IMBRUVICA [Suspect]
     Active Substance: IBRUTINIB
     Indication: Mantle cell lymphoma
     Dosage: 4 CYCLE; ;
     Route: 050
     Dates: start: 202203
  4. OBINUTUZUMAB [Concomitant]
     Active Substance: OBINUTUZUMAB
     Indication: Mantle cell lymphoma
     Route: 050
     Dates: start: 202207
  5. ACALABRUTINIB [Concomitant]
     Active Substance: ACALABRUTINIB
     Route: 050
     Dates: start: 202206

REACTIONS (1)
  - Mantle cell lymphoma [Unknown]
